FAERS Safety Report 21832243 (Version 1)
Quarter: 2023Q1

REPORT INFORMATION
  Report Type: Spontaneous
  Country: IT (occurrence: IT)
  Receive Date: 20230106
  Receipt Date: 20230106
  Transmission Date: 20230417
  Serious: Yes (Hospitalization)
  Sender: FDA-Public Use
  Company Number: None

PATIENT
  Sex: Female

DRUGS (15)
  1. FENOFIBRATE [Suspect]
     Active Substance: FENOFIBRATE
     Indication: Hypertriglyceridaemia
     Dosage: 145 MILLIGRAM, QD
     Route: 065
  2. ZOLOFT [Interacting]
     Active Substance: SERTRALINE HYDROCHLORIDE
     Indication: Depression
     Dosage: 50 MILLIGRAM, QD
     Route: 048
  3. CANRENOATE POTASSIUM [Suspect]
     Active Substance: CANRENOATE POTASSIUM
     Indication: Hyperaldosteronism
     Dosage: 100 MILLIGRAM, QD (FROM FRIDAY TO SUNDAY)
     Route: 048
  4. LASIX [Interacting]
     Active Substance: FUROSEMIDE
     Indication: Hypertension
     Dosage: 25 MILLIGRAM, QD (FROM MONDAY TO THURSDAY)
     Route: 048
  5. PANTOPRAZOLE SODIUM [Concomitant]
     Active Substance: PANTOPRAZOLE SODIUM
     Dosage: UNK
     Route: 065
  6. AMITRIPTYLINE HYDROCHLORIDE [Concomitant]
     Active Substance: AMITRIPTYLINE HYDROCHLORIDE
     Dosage: UNK
     Route: 065
  7. ATARAX [Concomitant]
     Active Substance: HYDROXYZINE HYDROCHLORIDE
     Dosage: UNK
     Route: 065
  8. LEUCOVORIN CALCIUM [Concomitant]
     Active Substance: LEUCOVORIN CALCIUM
     Dosage: UNK
     Route: 065
  9. EN [Concomitant]
     Active Substance: DELORAZEPAM
     Dosage: UNK
     Route: 065
  10. Dobetin [Concomitant]
     Dosage: UNK
     Route: 065
  11. SYMBICORT [Concomitant]
     Active Substance: BUDESONIDE\FORMOTEROL FUMARATE DIHYDRATE
     Dosage: UNK
     Route: 065
  12. ADEMETIONINE [Concomitant]
     Active Substance: ADEMETIONINE
     Dosage: UNK
     Route: 065
  13. FOLIFILL [Concomitant]
     Dosage: UNK
     Route: 065
  14. OLMESARTAN DOC GENERICI [Concomitant]
     Dosage: UNK
     Route: 065
  15. BIOARGININA [Concomitant]
     Dosage: UNK
     Route: 065

REACTIONS (5)
  - Anaemia [Recovering/Resolving]
  - Amylase increased [Recovering/Resolving]
  - Transaminases increased [Recovering/Resolving]
  - Hyponatraemia [Recovering/Resolving]
  - Drug interaction [Unknown]

NARRATIVE: CASE EVENT DATE: 20221112
